FAERS Safety Report 5881535-1 (Version None)
Quarter: 2008Q3

REPORT INFORMATION
  Report Type: 
  Country: None (occurrence: None)
  Receive Date: 20080911
  Receipt Date: 20080829
  Transmission Date: 20090109
  Serious: Yes (Hospitalization)
  Sender: FDA-Public Use
  Company Number: 2008AL010217

PATIENT
  Age: 77 Year
  Sex: Male
  Weight: 111.5849 kg

DRUGS (1)
  1. DIGOXIN [Suspect]
     Indication: CARDIAC DISORDER
     Dosage: 0.125MG, DAILY, PO

REACTIONS (3)
  - HEART RATE IRREGULAR [None]
  - HYPERTENSION [None]
  - PNEUMONIA [None]
